FAERS Safety Report 6033356-7 (Version None)
Quarter: 2009Q1

REPORT INFORMATION
  Report Type: 
  Country: None (occurrence: None)
  Receive Date: 20090105
  Receipt Date: 20080828
  Transmission Date: 20090719
  Serious: Yes (Hospitalization)
  Sender: FDA-Public Use
  Company Number: US-001807

PATIENT
  Age: 60 Year
  Sex: Male
  Weight: 91.3 kg

DRUGS (4)
  1. MULTIHANCE [Suspect]
     Indication: NUCLEAR MAGNETIC RESONANCE IMAGING BRAIN
     Dosage: 20ML QD INTRAVENOUS (NOT OTHERWISE SPECIFIED)
     Route: 042
     Dates: start: 20080827, end: 20080827
  2. MULTIHANCE [Suspect]
     Indication: SCAN BRAIN
     Dosage: 20ML QD INTRAVENOUS (NOT OTHERWISE SPECIFIED)
     Route: 042
     Dates: start: 20080827, end: 20080827
  3. POTASSIUM CHLORIDE [Concomitant]
  4. ATACAND [Concomitant]

REACTIONS (1)
  - ANAPHYLACTIC REACTION [None]
